FAERS Safety Report 8772828 (Version 1)
Quarter: 2012Q4

REPORT INFORMATION
  Report Type: 
  Country: US (occurrence: US)
  Receive Date: 20120907
  Receipt Date: 20120907
  Transmission Date: 20130627
  Serious: Yes (Hospitalization, Other)
  Sender: FDA-Public Use
  Company Number: US-ELI_LILLY_AND_COMPANY-US201207005105

PATIENT
  Age: 55 Year
  Sex: Male

DRUGS (7)
  1. BYDUREON [Suspect]
     Indication: INSULIN-REQUIRING TYPE 2 DIABETES MELLITUS
     Dosage: 2 mg, weekly (1/W)
     Route: 058
     Dates: start: 20120424, end: 20120617
  2. LANTUS [Concomitant]
     Indication: DIABETES MELLITUS
     Dosage: 6 u, qd
     Route: 058
     Dates: start: 200711
  3. NOVOLOG [Concomitant]
     Indication: DIABETES MELLITUS
     Dosage: 10 UNK, UNK
     Route: 058
     Dates: start: 201207
  4. METFORMIN [Concomitant]
     Indication: DIABETES MELLITUS
     Dosage: UNK
     Dates: end: 20120708
  5. ATORVASTATIN [Concomitant]
     Indication: DYSLIPIDAEMIA
     Dosage: 80 mg, qd
  6. BENICAR [Concomitant]
     Indication: HYPERTENSION
     Dosage: 20 mg, qd
  7. FUROSEMIDE [Concomitant]
     Indication: HYPERTENSION
     Dosage: 40 mg, qd
     Dates: end: 20120708

REACTIONS (10)
  - Blood pressure systolic increased [Recovering/Resolving]
  - Renal failure [Recovering/Resolving]
  - Anaemia [Unknown]
  - Cholelithiasis [Unknown]
  - Gastritis [Unknown]
  - Pain [Unknown]
  - Dehydration [Unknown]
  - Nausea [Recovered/Resolved]
  - Vomiting [Recovered/Resolved]
  - Off label use [Recovered/Resolved]
